FAERS Safety Report 7300687-X (Version None)
Quarter: 2011Q1

REPORT INFORMATION
  Report Type: 
  Country: None (occurrence: None)
  Receive Date: 20110207
  Receipt Date: 20110125
  Transmission Date: 20110831
  Serious: Yes (Death, Hospitalization, Other)
  Sender: FDA-Public Use
  Company Number: 85732-3

PATIENT
  Age: 45 Year
  Sex: Male
  Weight: 85 kg

DRUGS (1)
  1. ETOPOSIDE [Suspect]
     Dosage: 50 MG
     Dates: start: 20090622, end: 20090929

REACTIONS (10)
  - VOMITING [None]
  - THROMBOPHLEBITIS [None]
  - RADIATION LEUKOPENIA [None]
  - COUGH [None]
  - DYSPNOEA [None]
  - HYPERTENSION [None]
  - NEUTROPENIA [None]
  - RADIATION OESOPHAGITIS [None]
  - LARYNGITIS [None]
  - DYSPHAGIA [None]
